FAERS Safety Report 21731934 (Version 3)
Quarter: 2023Q1

REPORT INFORMATION
  Report Type: Report from Study
  Country: BE (occurrence: BE)
  Receive Date: 20221215
  Receipt Date: 20230110
  Transmission Date: 20230418
  Serious: Yes (Hospitalization)
  Sender: FDA-Public Use
  Company Number: BE-ABBVIE-4236338

PATIENT
  Sex: Female
  Weight: 60 kg

DRUGS (7)
  1. CARBIDOPA\LEVODOPA [Suspect]
     Active Substance: CARBIDOPA\LEVODOPA
     Indication: Parkinson^s disease
     Route: 050
     Dates: start: 20191125
  2. CARBIDOPA\LEVODOPA [Suspect]
     Active Substance: CARBIDOPA\LEVODOPA
     Dosage: MD 5.0 ML; CD 3.1 ML/HR DURING 16 HOURS; ED 3.0 ML
     Route: 050
     Dates: start: 20221006
  3. NORTRIPTYLINE [Concomitant]
     Active Substance: NORTRIPTYLINE
     Indication: Product used for unknown indication
     Dosage: FORM STRENGTH: 25MG,?ONCE IN THE EVENING
  4. PAROXETINE EG [Concomitant]
     Indication: Product used for unknown indication
     Dosage: FORM STRENGTH: 50
  5. XANAX [Concomitant]
     Active Substance: ALPRAZOLAM
     Indication: Product used for unknown indication
     Dosage: FORM STRENGTH: 0.5 MG
  6. BENSERAZIDE\LEVODOPA [Concomitant]
     Active Substance: BENSERAZIDE\LEVODOPA
     Indication: Product used for unknown indication
     Dosage: FORM STRENGTH: 250,?FREQUENCY: 7,9,11,13,15,17,19,21 HOURS
  7. SEROQUEL [Concomitant]
     Active Substance: QUETIAPINE FUMARATE
     Indication: Product used for unknown indication
     Dosage: 0.5 UNKNOWN,?FORM STRENGTH: 25MG,?ONCE IN THE EVENING

REACTIONS (2)
  - Dysphagia [Not Recovered/Not Resolved]
  - Dyskinesia [Unknown]
